FAERS Safety Report 4985963-8 (Version None)
Quarter: 2006Q2

REPORT INFORMATION
  Report Type: 
  Country: None (occurrence: None)
  Receive Date: 20060428
  Receipt Date: 20060406
  Transmission Date: 20061013
  Serious: Yes (Hospitalization)
  Sender: FDA-Public Use
  Company Number: US-AVENTIS-200612159EU

PATIENT
  Age: 42 Year
  Sex: Male
  Weight: 83.8 kg

DRUGS (6)
  1. LOVENOX [Suspect]
     Indication: HAEMOPTYSIS
     Route: 030
     Dates: start: 20060223
  2. OXYCONTIN [Concomitant]
     Indication: PAIN
     Dosage: DOSE: UNKNOWN DOSE
     Route: 048
     Dates: start: 20060130
  3. OXYCODONE HCL [Concomitant]
     Indication: PAIN
     Dosage: DOSE: UNKNOWN DOSE
     Route: 048
     Dates: start: 20060130
  4. SENNA [Concomitant]
     Indication: DRUG USE FOR UNKNOWN INDICATION
     Dosage: DOSE: UNKNOWN DOSE
     Route: 048
     Dates: start: 20050609
  5. ATENOLOL [Concomitant]
     Indication: DRUG USE FOR UNKNOWN INDICATION
     Dosage: DOSE: UNKNOWN DOSE
     Route: 048
     Dates: start: 20050609
  6. COLACE [Concomitant]
     Indication: DRUG USE FOR UNKNOWN INDICATION
     Dosage: DOSE: UNKNOWN DOSE
     Route: 048
     Dates: start: 20050128

REACTIONS (2)
  - HAEMOPTYSIS [None]
  - PLEURAL EFFUSION [None]
